FAERS Safety Report 5085360-3 (Version None)
Quarter: 2006Q3

REPORT INFORMATION
  Report Type: 
  Country: None (occurrence: None)
  Receive Date: 20060816
  Receipt Date: 20060802
  Transmission Date: 20061208
  Serious: Yes (Hospitalization, Other)
  Sender: FDA-Public Use
  Company Number: 8017250

PATIENT
  Age: 36 Year
  Sex: Female
  Weight: 55 kg

DRUGS (3)
  1. KEPPRA [Suspect]
     Dosage: 1500 MG ONCE PO
     Route: 048
     Dates: start: 20060525, end: 20060525
  2. CARBAMAZEPINE [Suspect]
     Dosage: 1200 MG ONCE PO
     Route: 048
     Dates: start: 20060525, end: 20060525
  3. ZYPREXA [Suspect]
     Dosage: 5 MG ONCE PO
     Route: 048
     Dates: start: 20060525, end: 20060525

REACTIONS (1)
  - ACCIDENTAL EXPOSURE [None]
